FAERS Safety Report 9767903 (Version 1)
Quarter: 2013Q4

REPORT INFORMATION
  Report Type: Spontaneous
  Country: GB (occurrence: GB)
  Receive Date: 20131217
  Receipt Date: 20131217
  Transmission Date: 20140711
  Serious: Yes (Life-Threatening)
  Sender: FDA-Public Use
  Company Number: GB-OTSUKA-EU-2013-10332

PATIENT
  Age: 76 Year
  Sex: Male
  Weight: 72.6 kg

DRUGS (8)
  1. CILOSTAZOL [Suspect]
     Indication: PERIPHERAL VASCULAR DISORDER
     Dosage: 100 MG MILLIGRAM(S), UNKNOWN
     Route: 048
     Dates: end: 20131121
  2. ASPIRIN [Concomitant]
     Dosage: 75 MG MILLIGRAM(S), UNKNOWN
     Route: 048
  3. ATENOLOL [Concomitant]
     Dosage: 100 MG MILLIGRAM(S), UNKNOWN
     Route: 048
  4. BENDROFLUMETHIAZIDE [Concomitant]
     Dosage: 2.5 MG MILLIGRAM(S), UNKNOWN
     Route: 048
  5. CO-CODAMOL [Concomitant]
     Dosage: UNK UNK, UNKNOWN
     Route: 048
  6. RAMIPRIL [Concomitant]
     Dosage: 5 MG MILLIGRAM(S), UNKNOWN
     Route: 048
  7. SIMVASTATIN [Concomitant]
     Dosage: 80 MG MILLIGRAM(S), UNKNOWN
     Route: 048
  8. TAMSULOSIN [Concomitant]
     Dosage: 400 MG MILLIGRAM(S), UNKNOWN
     Route: 048

REACTIONS (2)
  - Post procedural haematoma [Recovering/Resolving]
  - Haemorrhage [Recovering/Resolving]
